FAERS Safety Report 6444020-4 (Version None)
Quarter: 2009Q4

REPORT INFORMATION
  Report Type: 
  Country: None (occurrence: None)
  Receive Date: 20091116
  Receipt Date: 20091116
  Transmission Date: 20100525
  Serious: Yes (Life-Threatening, Hospitalization)
  Sender: FDA-Public Use
  Company Number: None

PATIENT
  Sex: Female
  Weight: 73 kg

DRUGS (1)
  1. FLUOROURACIL [Suspect]
     Indication: VULVAL CANCER
     Dosage: 1650MG CONTINUOUS INTRAVENOUS
     Route: 042
     Dates: start: 20091109, end: 20091111

REACTIONS (2)
  - ARTERIOSPASM CORONARY [None]
  - DRUG TOXICITY [None]
